FAERS Safety Report 10775371 (Version 1)
Quarter: 2015Q1

REPORT INFORMATION
  Report Type: Spontaneous
  Country: GT (occurrence: GT)
  Receive Date: 20150209
  Receipt Date: 20150209
  Transmission Date: 20150721
  Serious: Yes (Other)
  Sender: FDA-Public Use
  Company Number: GT-BAYER-2015-014982

PATIENT
  Age: 51 Year
  Sex: Male

DRUGS (2)
  1. STIVARGA [Suspect]
     Active Substance: REGORAFENIB
     Indication: METASTASES TO LIVER
  2. STIVARGA [Suspect]
     Active Substance: REGORAFENIB
     Indication: COLON CANCER
     Dosage: UNK
     Route: 048
     Dates: start: 20140821, end: 201411

REACTIONS (7)
  - Palmar-plantar erythrodysaesthesia syndrome [Recovering/Resolving]
  - Gait disturbance [Recovering/Resolving]
  - Tumour marker increased [None]
  - Colon cancer [None]
  - Pain [Recovering/Resolving]
  - Drug ineffective [None]
  - Adverse drug reaction [Recovering/Resolving]
